FAERS Safety Report 11202176 (Version 1)
Quarter: 2015Q2

REPORT INFORMATION
  Report Type: Spontaneous
  Country: US (occurrence: None)
  Receive Date: 20150617
  Receipt Date: 20150617
  Transmission Date: 20150821
  Serious: Yes (Other)
  Sender: FDA-Public Use
  Company Number: T-2015-403

PATIENT
  Age: 7 Year
  Sex: Female
  Weight: 20.4 kg

DRUGS (1)
  1. CYSTADANE [Suspect]
     Active Substance: BETAINE
     Indication: METHYLMALONIC ACIDURIA
     Dates: start: 20140826

REACTIONS (1)
  - Arthralgia [None]

NARRATIVE: CASE EVENT DATE: 20150521
